FAERS Safety Report 4869501-6 (Version None)
Quarter: 2005Q4

REPORT INFORMATION
  Report Type: 
  Country: None (occurrence: None)
  Receive Date: 20051230
  Receipt Date: 20051220
  Transmission Date: 20060501
  Serious: Yes (Hospitalization)
  Sender: FDA-Public Use
  Company Number: US-MERCK-0512USA03481

PATIENT
  Age: 44 Year
  Sex: Female
  Weight: 100 kg

DRUGS (15)
  1. VIOXX [Suspect]
     Indication: BACK PAIN
     Route: 048
     Dates: start: 20011001, end: 20031201
  2. VIOXX [Suspect]
     Route: 048
     Dates: start: 20011001, end: 20031201
  3. VIOXX [Suspect]
     Route: 048
     Dates: start: 20011001, end: 20031201
  4. VIOXX [Suspect]
     Route: 048
     Dates: start: 20011001, end: 20031201
  5. VIOXX [Suspect]
     Route: 048
     Dates: start: 20011001, end: 20031201
  6. VIOXX [Suspect]
     Route: 048
     Dates: start: 20011001, end: 20031201
  7. VIOXX [Suspect]
     Indication: ARTHRALGIA
     Route: 048
     Dates: start: 20011001, end: 20031201
  8. VIOXX [Suspect]
     Route: 048
     Dates: start: 20011001, end: 20031201
  9. VIOXX [Suspect]
     Route: 048
     Dates: start: 20011001, end: 20031201
  10. VIOXX [Suspect]
     Route: 048
     Dates: start: 20011001, end: 20031201
  11. VIOXX [Suspect]
     Route: 048
     Dates: start: 20011001, end: 20031201
  12. VIOXX [Suspect]
     Route: 048
     Dates: start: 20011001, end: 20031201
  13. WELLBUTRIN [Concomitant]
     Route: 065
  14. LOTREL [Concomitant]
     Route: 065
  15. GLUCOVANCE [Concomitant]
     Route: 065

REACTIONS (3)
  - ACUTE MYOCARDIAL INFARCTION [None]
  - COUGH [None]
  - DEPRESSION [None]
